FAERS Safety Report 7611517-0 (Version None)
Quarter: 2011Q3

REPORT INFORMATION
  Report Type: 
  Country: None (occurrence: None)
  Receive Date: 20110715
  Receipt Date: 20110705
  Transmission Date: 20111222
  Serious: Yes (Death)
  Sender: FDA-Public Use
  Company Number: BE-SANOFI-AVENTIS-2011SA043726

PATIENT
  Age: 79 Year
  Sex: Male
  Weight: 64 kg

DRUGS (6)
  1. BISOPROLOL [Concomitant]
  2. CLOPIDOGREL [Concomitant]
  3. WARFARIN SODIUM [Concomitant]
     Dosage: 25MG WEEKLY
  4. DIGOXIN [Concomitant]
  5. DRONEDARONE HCL [Suspect]
     Indication: ATRIAL FIBRILLATION
     Route: 048
     Dates: start: 20110228, end: 20110304
  6. BUMETANIDE [Concomitant]

REACTIONS (1)
  - CARDIAC DEATH [None]
